FAERS Safety Report 6471260-0 (Version None)
Quarter: 2009Q4

REPORT INFORMATION
  Report Type: 
  Country: None (occurrence: None)
  Receive Date: 20091203
  Receipt Date: 20081209
  Transmission Date: 20100525
  Serious: Yes (Death, Hospitalization, Other)
  Sender: FDA-Public Use
  Company Number: FR-ELI_LILLY_AND_COMPANY-FR200802001287

PATIENT
  Sex: Male
  Weight: 67 kg

DRUGS (5)
  1. GEMZAR [Suspect]
     Indication: NON-SMALL CELL LUNG CANCER
     Dosage: 1300 MG/M2, OTHER
     Route: 042
     Dates: start: 20080107, end: 20080101
  2. GEMZAR [Suspect]
     Dosage: 40% OF THE INITIAL DOSAGE, OTHER, OTHER
     Route: 042
     Dates: start: 20080114
  3. CISPLATIN [Concomitant]
     Indication: NON-SMALL CELL LUNG CANCER
     Dosage: UNK, UNKNOWN
     Route: 042
     Dates: start: 20080107
  4. ZOPHREN [Concomitant]
     Dosage: UNK, UNKNOWN
     Route: 042
     Dates: start: 20080114, end: 20080116
  5. SOLU-MEDROL [Concomitant]
     Dosage: 80 MG, UNKNOWN
     Route: 042
     Dates: start: 20080107, end: 20080110

REACTIONS (5)
  - BONE MARROW FAILURE [None]
  - CARDIAC FAILURE ACUTE [None]
  - CARDIOPULMONARY FAILURE [None]
  - GENERALISED OEDEMA [None]
  - PERITONEAL INFECTION [None]
